FAERS Safety Report 10638659 (Version 2)
Quarter: 2015Q4

REPORT INFORMATION
  Report Type: Spontaneous
  Country: US (occurrence: US)
  Receive Date: 20141208
  Receipt Date: 20151215
  Transmission Date: 20160304
  Serious: No
  Sender: FDA-Public Use
  Company Number: US-SA-2014SA158893

PATIENT
  Age: 41 Year
  Sex: Female

DRUGS (11)
  1. FERRLECIT [Suspect]
     Active Substance: SODIUM FERRIC GLUCONATE COMPLEX
     Indication: ANAEMIA
     Dosage: 125MG IN 100 ML NS INFUSIONS
     Dates: start: 20140411, end: 20140411
  2. BENADRYL [Concomitant]
     Active Substance: DIPHENHYDRAMINE HYDROCHLORIDE
     Route: 042
  3. FERRLECIT [Suspect]
     Active Substance: SODIUM FERRIC GLUCONATE COMPLEX
     Indication: ANAEMIA
     Dosage: 125MG IN 100 ML NS INFUSIONS
     Dates: start: 20130916, end: 20130916
  4. FERRLECIT [Suspect]
     Active Substance: SODIUM FERRIC GLUCONATE COMPLEX
     Indication: ANAEMIA
     Dosage: 125MG IN 100 ML NS INFUSIONS
     Dates: start: 20131112, end: 20131112
  5. FERRLECIT [Suspect]
     Active Substance: SODIUM FERRIC GLUCONATE COMPLEX
     Indication: ANAEMIA
     Dosage: 125MG IN 100 ML NS INFUSIONS
     Dates: start: 20141111, end: 20141111
  6. DECADRON [Concomitant]
     Active Substance: DEXAMETHASONE
  7. FERRLECIT [Suspect]
     Active Substance: SODIUM FERRIC GLUCONATE COMPLEX
     Indication: ANAEMIA
     Dosage: 125MG IN 100 ML NS INFUSIONS
     Dates: start: 20130819, end: 20130819
  8. FERRLECIT [Suspect]
     Active Substance: SODIUM FERRIC GLUCONATE COMPLEX
     Indication: ANAEMIA
     Dosage: 125MG IN 100 ML NS INFUSIONS
     Dates: start: 20130517, end: 20130517
  9. ZOFRAN [Concomitant]
     Active Substance: ONDANSETRON HYDROCHLORIDE
  10. FERRLECIT [Suspect]
     Active Substance: SODIUM FERRIC GLUCONATE COMPLEX
     Indication: ANAEMIA
     Dosage: 125MG IN 100 ML NS INFUSIONS
     Dates: start: 20140204, end: 20140204
  11. FERRLECIT [Suspect]
     Active Substance: SODIUM FERRIC GLUCONATE COMPLEX
     Indication: ANAEMIA
     Dosage: 125MG IN 100 ML NS INFUSIONS
     Dates: start: 20130521, end: 20130521

REACTIONS (6)
  - Hypersensitivity [Unknown]
  - Vomiting [Unknown]
  - Peripheral swelling [Unknown]
  - Speech disorder [Unknown]
  - Urticaria [Unknown]
  - Nausea [Unknown]

NARRATIVE: CASE EVENT DATE: 20141111
